FAERS Safety Report 19189429 (Version 1)
Quarter: 2021Q2

REPORT INFORMATION
  Report Type: Spontaneous
  Country: US (occurrence: US)
  Receive Date: 20210428
  Receipt Date: 20210428
  Transmission Date: 20210717
  Serious: Yes (Other)
  Sender: FDA-Public Use
  Company Number: None

PATIENT
  Sex: Female

DRUGS (1)
  1. HYDROMORPHONE 2MG [Suspect]
     Active Substance: HYDROMORPHONE

REACTIONS (2)
  - Hallucination [None]
  - Intestinal obstruction [None]
